FAERS Safety Report 25749288 (Version 1)
Quarter: 2025Q3

REPORT INFORMATION
  Report Type: Spontaneous
  Country: JP (occurrence: JP)
  Receive Date: 20250902
  Receipt Date: 20250902
  Transmission Date: 20251021
  Serious: Yes (Life-Threatening, Hospitalization)
  Sender: GE HEALTHCARE
  Company Number: JP-GEHPL-2025JSU011849AA

PATIENT
  Age: 77 Year
  Sex: Female
  Weight: 56 kg

DRUGS (1)
  1. OMNIPAQUE [Suspect]
     Active Substance: IOHEXOL
     Indication: Diagnostic procedure
     Route: 042
     Dates: start: 20250820, end: 20250820

REACTIONS (5)
  - Blood pressure decreased [Recovered/Resolved]
  - Sneezing [Unknown]
  - Dyspnoea [Unknown]
  - Oxygen saturation decreased [Unknown]
  - Radial pulse abnormal [Unknown]

NARRATIVE: CASE EVENT DATE: 20250820
